FAERS Safety Report 15469387 (Version 4)
Quarter: 2018Q4

REPORT INFORMATION
  Report Type: Report from Study
  Country: US (occurrence: US)
  Receive Date: 20181005
  Receipt Date: 20181102
  Transmission Date: 20190205
  Serious: Yes (Death, Hospitalization, Other)
  Sender: FDA-Public Use
  Company Number: US-BRISTOL-MYERS SQUIBB COMPANY-BMS-2018-092945

PATIENT
  Age: 70 Year
  Sex: Female

DRUGS (21)
  1. CALCIUM ACETATE. [Concomitant]
     Active Substance: CALCIUM ACETATE
     Indication: HYPERPHOSPHATAEMIA
     Dosage: UNK, TID
     Route: 048
     Dates: start: 20150402
  2. APIDRA SOLOSTAR [Concomitant]
     Active Substance: INSULIN GLULISINE
     Indication: DIABETES MELLITUS
     Dosage: UNK, TID
     Route: 058
     Dates: start: 2009
  3. GABAPENTIN. [Concomitant]
     Active Substance: GABAPENTIN
     Indication: DIABETIC NEUROPATHY
     Dosage: UNK, TID
     Route: 048
     Dates: start: 20140822
  4. LANTUS [Concomitant]
     Active Substance: INSULIN GLARGINE
     Indication: DIABETES MELLITUS
     Dosage: UNK, TID
     Route: 058
     Dates: start: 2004
  5. BIOFREEZE                          /00482701/ [Concomitant]
     Indication: NECK PAIN
     Dosage: UNK, PRN
     Route: 061
     Dates: start: 2016
  6. ASPIRIN                            /00002701/ [Concomitant]
     Active Substance: ASPIRIN
     Indication: CARDIOVASCULAR EVENT PROPHYLAXIS
     Dosage: UNK, DAILY
     Route: 048
     Dates: start: 20170428
  7. BECLOMETHASONE                     /00212601/ [Concomitant]
     Active Substance: BECLOMETHASONE
     Indication: CHRONIC OBSTRUCTIVE PULMONARY DISEASE
     Dosage: `UNK, BID
     Route: 065
     Dates: start: 20171108
  8. VELTASSA [Concomitant]
     Active Substance: PATIROMER
     Indication: HYPERKALAEMIA
     Dosage: UNK, DAILY
     Route: 048
     Dates: start: 20170927
  9. HEPARIN [Concomitant]
     Active Substance: HEPARIN SODIUM
     Indication: COAGULOPATHY
     Dosage: UNK, PRN
     Route: 042
     Dates: start: 20160726
  10. LEVOTHYROXINE. [Concomitant]
     Active Substance: LEVOTHYROXINE
     Indication: HYPOTHYROIDISM
     Dosage: UNK,DAILY
     Route: 048
     Dates: start: 20140822
  11. TORSEMIDE. [Concomitant]
     Active Substance: TORSEMIDE
     Indication: CARDIAC FAILURE CONGESTIVE
     Dosage: UNK, BID
     Route: 048
  12. CHOLECALCIFEROL [Concomitant]
     Active Substance: CHOLECALCIFEROL
     Indication: END STAGE RENAL DISEASE
     Dosage: UNK, BID
     Route: 048
     Dates: start: 2014
  13. ANORO ELLIPTA [Concomitant]
     Active Substance: UMECLIDINIUM BROMIDE\VILANTEROL TRIFENATATE
     Indication: CHRONIC OBSTRUCTIVE PULMONARY DISEASE
     Dosage: UNK, DAILY
     Route: 065
     Dates: start: 20171115
  14. SIMVASTATIN. [Concomitant]
     Active Substance: SIMVASTATIN
     Indication: HYPERCHOLESTEROLAEMIA
     Dosage: UNK, DAILY
     Route: 048
     Dates: start: 20150425
  15. DOCUSATE SODIUM. [Concomitant]
     Active Substance: DOCUSATE SODIUM
     Indication: CONSTIPATION
     Dosage: UNK, BID
     Route: 048
     Dates: start: 2012
  16. LANSOPRAZOLE. [Concomitant]
     Active Substance: LANSOPRAZOLE
     Indication: GASTROOESOPHAGEAL REFLUX DISEASE
     Dosage: UNK, BID
     Route: 048
     Dates: start: 20140401
  17. WARFARIN [Concomitant]
     Active Substance: WARFARIN
     Indication: ATRIAL FIBRILLATION
     Dosage: UNK, DAILY
     Route: 048
     Dates: start: 20180531
  18. MIDODRINE [Concomitant]
     Active Substance: MIDODRINE
     Indication: HYPOTENSION
     Dosage: UNK, TID
     Route: 048
     Dates: start: 201602
  19. WARFARIN SODIUM. [Suspect]
     Active Substance: WARFARIN SODIUM
     Indication: ATRIAL FIBRILLATION
     Dosage: 3.5 MG, UNK
     Route: 065
     Dates: end: 20180726
  20. RENA-VITE [Concomitant]
     Active Substance: ASCORBIC ACID\BIOTIN\CALCIUM PANTOTHENATE\CYANOCOBALAMIN\FOLIC ACID\NIACINAMIDE\PYRIDOXINE HYDROCHLORIDE\RIBOFLAVIN\THIAMINE MONONITRATE
     Indication: END STAGE RENAL DISEASE
     Dosage: DAILY
     Route: 048
     Dates: start: 20140916
  21. AMIODARONE [Concomitant]
     Active Substance: AMIODARONE
     Indication: ATRIAL FIBRILLATION
     Dosage: UNK, DAILY
     Route: 048
     Dates: start: 20140428

REACTIONS (4)
  - Sudden cardiac death [Fatal]
  - Fall [Unknown]
  - Tibia fracture [Not Recovered/Not Resolved]
  - Foot fracture [Not Recovered/Not Resolved]

NARRATIVE: CASE EVENT DATE: 20180821
